FAERS Safety Report 5549249-5 (Version None)
Quarter: 2007Q4

REPORT INFORMATION
  Report Type: 
  Country: None (occurrence: None)
  Receive Date: 20071210
  Receipt Date: 20071128
  Transmission Date: 20080405
  Serious: Yes (Hospitalization)
  Sender: FDA-Public Use
  Company Number: 2007BI022147

PATIENT
  Age: 60 Year
  Sex: Female
  Weight: 62.1428 kg

DRUGS (10)
  1. AVONEX [Suspect]
     Indication: MULTIPLE SCLEROSIS
     Dosage: 30 UG;QW;IM
     Route: 030
     Dates: start: 20000101, end: 20030101
  2. AVONEX [Suspect]
     Indication: MULTIPLE SCLEROSIS
     Dosage: 30 UG;QW;IM
     Route: 030
     Dates: start: 20030101
  3. AVONEX [Suspect]
     Indication: MULTIPLE SCLEROSIS
     Dosage: 30 UG;QW;IM
     Route: 030
     Dates: start: 20071011
  4. NEXIUM [Concomitant]
  5. FOLIC ACID [Concomitant]
  6. MULTI-VITAMIN [Concomitant]
  7. ADVIL LIQUI-GELS [Concomitant]
  8. PERDIEM [Concomitant]
  9. METHYLPHENIDATE HCL [Concomitant]
  10. STOOL SOFTNER [Concomitant]

REACTIONS (5)
  - BLOOD GLUCOSE INCREASED [None]
  - BLOOD PRESSURE INCREASED [None]
  - GAIT DISTURBANCE [None]
  - HYPOAESTHESIA [None]
  - MULTIPLE SCLEROSIS RELAPSE [None]
